FAERS Safety Report 12834380 (Version 1)
Quarter: 2016Q4

REPORT INFORMATION
  Report Type: Spontaneous
  Country: DE (occurrence: DE)
  Receive Date: 20161010
  Receipt Date: 20161010
  Transmission Date: 20170207
  Serious: Yes (Other)
  Sender: FDA-Public Use
  Company Number: DE-TAKEDA-2016TUS015887

PATIENT
  Age: 50 Year
  Sex: Female
  Weight: 82 kg

DRUGS (1)
  1. ENTYVIO [Suspect]
     Active Substance: VEDOLIZUMAB
     Indication: CROHN^S DISEASE
     Dosage: 300 MG, UNK
     Route: 065
     Dates: start: 20160303

REACTIONS (3)
  - Hepatic enzyme increased [Unknown]
  - Transaminases increased [Unknown]
  - Cholangitis sclerosing [Recovering/Resolving]

NARRATIVE: CASE EVENT DATE: 20160414
